FAERS Safety Report 5993628-9 (Version None)
Quarter: 2008Q4

REPORT INFORMATION
  Report Type: 
  Country: None (occurrence: None)
  Receive Date: 20081212
  Receipt Date: 20080827
  Transmission Date: 20090506
  Serious: No
  Sender: FDA-Public Use
  Company Number: US-AMGEN-KDL304431

PATIENT
  Sex: Male

DRUGS (2)
  1. ENBREL [Suspect]
     Indication: RHEUMATOID ARTHRITIS
     Route: 058
     Dates: start: 20071116
  2. METHOTREXATE [Concomitant]

REACTIONS (3)
  - FOOT FRACTURE [None]
  - IMPAIRED HEALING [None]
  - INJECTION SITE HAEMATOMA [None]
